FAERS Safety Report 15227326 (Version 1)
Quarter: 2018Q3

REPORT INFORMATION
  Report Type: Spontaneous
  Country: US (occurrence: US)
  Receive Date: 20180706
  Receipt Date: 20180706
  Transmission Date: 20181010
  Serious: Yes (Hospitalization)
  Sender: FDA-Public Use
  Company Number: None

PATIENT
  Age: 35 Year
  Sex: Male
  Weight: 104.8 kg

DRUGS (9)
  1. AMLODIPINE [Concomitant]
     Active Substance: AMLODIPINE BESYLATE
  2. DIAZEPAM. [Concomitant]
     Active Substance: DIAZEPAM
  3. HYDROCHLOROTHIAZIDE/LISINOPRIL [Concomitant]
     Active Substance: HYDROCHLOROTHIAZIDE\LISINOPRIL
  4. OXYCODONE EXTENDED RELEASE [Concomitant]
     Active Substance: OXYCODONE
  5. CELECOXIB. [Concomitant]
     Active Substance: CELECOXIB
  6. DOXYCYCLINE. [Concomitant]
     Active Substance: DOXYCYCLINE
  7. NOVOSEVEN [Suspect]
     Active Substance: COAGULATION FACTOR VIIA RECOMBINANT HUMAN
     Indication: FACTOR IX DEFICIENCY
     Dosage: ?          OTHER FREQUENCY:Q3H FOR 6 DOSES ;?
     Route: 042
     Dates: start: 20150411
  8. FEIBA [Concomitant]
     Active Substance: ANTI-INHIBITOR COAGULANT COMPLEX
  9. OXYCODONE IR [Concomitant]
     Active Substance: OXYCODONE

REACTIONS (1)
  - Pulmonary embolism [None]

NARRATIVE: CASE EVENT DATE: 20150412
